FAERS Safety Report 8492836-5 (Version None)
Quarter: 2012Q3

REPORT INFORMATION
  Report Type: 
  Country: None (occurrence: None)
  Receive Date: 20120706
  Receipt Date: 20120625
  Transmission Date: 20120928
  Serious: Yes (Other)
  Sender: FDA-Public Use
  Company Number: US-ELI_LILLY_AND_COMPANY-US201206008297

PATIENT
  Age: 64 Year
  Sex: Female

DRUGS (1)
  1. FORTEO [Suspect]

REACTIONS (6)
  - SPINAL FRACTURE [None]
  - LOWER LIMB FRACTURE [None]
  - ANKLE FRACTURE [None]
  - FRACTURE [None]
  - WRIST FRACTURE [None]
  - BODY HEIGHT DECREASED [None]
